FAERS Safety Report 20557850 (Version 2)
Quarter: 2022Q1

REPORT INFORMATION
  Report Type: Other
  Country: US (occurrence: None)
  Receive Date: 20220307
  Receipt Date: 20220313
  Transmission Date: 20220423
  Serious: No
  Sender: FDA-Public Use
  Company Number: US-ROCHE-3035235

PATIENT
  Age: 57 Year
  Sex: Male
  Weight: 127.12 kg

DRUGS (15)
  1. OCREVUS [Suspect]
     Active Substance: OCRELIZUMAB
     Indication: Primary progressive multiple sclerosis
     Dosage: ONGOING: YES
     Route: 042
     Dates: start: 2021
  2. VALIUM [Suspect]
     Active Substance: DIAZEPAM
     Indication: Anxiety
     Dosage: YES
     Route: 048
     Dates: start: 2020
  3. ALBUTEROL [Concomitant]
     Active Substance: ALBUTEROL
     Dosage: 90 MCG/ACTUATION OR PUFF; 2 PUFFS AS NEEDED ONGOING: YES
     Route: 055
  4. LEMTRADA [Concomitant]
     Active Substance: ALEMTUZUMAB
     Dates: start: 2019
  5. PREDNISONE [Concomitant]
     Active Substance: PREDNISONE
     Dosage: ONCE A DAY FOR ^A WEEK OR MAYBE TWO
  6. ONDANSETRON [Concomitant]
     Active Substance: ONDANSETRON
     Dosage: ONCE A DAY AS NEEDED ONGOING: YES
  7. TIZANIDINE [Concomitant]
     Active Substance: TIZANIDINE
     Dosage: ONGOING: YES
     Route: 048
     Dates: start: 2016
  8. ACYCLOVIR [Concomitant]
     Active Substance: ACYCLOVIR
     Dosage: ONGOING: YES
     Route: 048
  9. FUROSEMIDE [Concomitant]
     Active Substance: FUROSEMIDE
     Dosage: ONGOING: YES
  10. BUPROPION [Concomitant]
     Active Substance: BUPROPION
     Dosage: ONGOING: YES
     Route: 048
  11. BAYER ASPIRIN [Concomitant]
     Active Substance: ASPIRIN
     Dosage: EVERY NIGHT ONGOING: YES
     Route: 048
  12. ATORVASTATIN [Concomitant]
     Active Substance: ATORVASTATIN
     Dosage: ONGOING: YES
     Route: 048
     Dates: start: 2020
  13. TERAZOSIN [Concomitant]
     Active Substance: TERAZOSIN HYDROCHLORIDE
     Route: 048
  14. TRAZODONE [Concomitant]
     Active Substance: TRAZODONE HYDROCHLORIDE
     Dosage: ONGOING: YES
  15. MODERNA COVID-19 VACCINE [Concomitant]
     Active Substance: ELASOMERAN

REACTIONS (3)
  - COVID-19 [Recovered/Resolved]
  - Hyperthyroidism [Not Recovered/Not Resolved]
  - Gait disturbance [Not Recovered/Not Resolved]

NARRATIVE: CASE EVENT DATE: 20220101
